FAERS Safety Report 5803500-2 (Version None)
Quarter: 2008Q3

REPORT INFORMATION
  Report Type: 
  Country: None (occurrence: None)
  Receive Date: 20080708
  Receipt Date: 20080703
  Transmission Date: 20090109
  Serious: Yes (Life-Threatening)
  Sender: FDA-Public Use
  Company Number: JP-SANOFI-SYNTHELABO-F01200701273

PATIENT
  Sex: Female

DRUGS (8)
  1. AVASTIN [Suspect]
     Route: 041
     Dates: start: 20070828, end: 20070828
  2. GASTER [Concomitant]
     Dosage: UNK
     Dates: start: 20070715
  3. FLUOROURACIL [Suspect]
     Route: 042
     Dates: start: 20070828, end: 20070830
  4. NAUZELIN [Concomitant]
     Dosage: UNK
     Dates: start: 20070718, end: 20070724
  5. ISOVORIN [Suspect]
     Route: 041
     Dates: start: 20070828, end: 20070829
  6. KYTRIL [Concomitant]
     Dosage: UNK
     Dates: start: 20070718, end: 20070720
  7. ELPLAT [Suspect]
     Indication: COLON CANCER RECURRENT
     Route: 041
     Dates: start: 20070828, end: 20070828
  8. DECADRON [Concomitant]
     Dosage: UNK
     Dates: start: 20070718, end: 20070719

REACTIONS (1)
  - INTESTINAL FISTULA [None]
